FAERS Safety Report 12272736 (Version 1)
Quarter: 2016Q2

REPORT INFORMATION
  Report Type: Spontaneous
  Country: US (occurrence: US)
  Receive Date: 20160415
  Receipt Date: 20160415
  Transmission Date: 20160815
  Serious: No
  Sender: FDA-Public Use
  Company Number: US-PFIZER INC-2016169335

PATIENT
  Age: 50 Year
  Sex: Male
  Weight: 97.51 kg

DRUGS (7)
  1. SINGULAIR [Suspect]
     Active Substance: MONTELUKAST SODIUM
     Dosage: 30 MG, UNK
  2. ENBREL [Concomitant]
     Active Substance: ETANERCEPT
     Indication: PSORIASIS
     Dosage: UNK (FOR 10 YEARS)
  3. LYRICA [Suspect]
     Active Substance: PREGABALIN
     Indication: INTERVERTEBRAL DISC PROTRUSION
     Dosage: 50 MG CAPSULE, AT NOC 3 IN 1 DAY
     Route: 065
  4. CYMBALTA [Suspect]
     Active Substance: DULOXETINE HYDROCHLORIDE
     Dosage: 60 MG, UNK
  5. NEURONTIN [Suspect]
     Active Substance: GABAPENTIN
     Dosage: UNK
  6. VICODIN [Suspect]
     Active Substance: ACETAMINOPHEN\HYDROCODONE BITARTRATE
     Indication: PAIN
     Dosage: 2 DF, 2X/DAY (2 TABLETS IN THE AM AND 2 TABLETS IN THE PM)
     Route: 048
     Dates: start: 2006, end: 2015
  7. CYMBALTA [Suspect]
     Active Substance: DULOXETINE HYDROCHLORIDE
     Dosage: 30 MG, 1X/DAY

REACTIONS (15)
  - Insomnia [Unknown]
  - Feeling drunk [Unknown]
  - Hypersomnia [Unknown]
  - Motion sickness [Unknown]
  - Vision blurred [Unknown]
  - Hypophagia [Unknown]
  - Blood pressure increased [Unknown]
  - Pain [Unknown]
  - Compulsive shopping [Unknown]
  - Hyperphagia [Unknown]
  - Amnesia [Unknown]
  - Anger [Unknown]
  - Dysgraphia [Unknown]
  - Weight increased [Unknown]
  - Fatigue [Unknown]
